FAERS Safety Report 25047828 (Version 1)
Quarter: 2025Q1

REPORT INFORMATION
  Report Type: Report from Study
  Country: TH (occurrence: TH)
  Receive Date: 20250306
  Receipt Date: 20250306
  Transmission Date: 20250408
  Serious: Yes (Death, Hospitalization, Other)
  Sender: ALEXION PHARMACEUTICALS
  Company Number: TH-AstraZeneca-CH-00819648A

PATIENT
  Age: 69 Year

DRUGS (1)
  1. OSIMERTINIB [Suspect]
     Active Substance: OSIMERTINIB
     Indication: Non-small cell lung cancer
     Dosage: 80 MILLIGRAM, QD

REACTIONS (16)
  - Death [Fatal]
  - Multiple fractures [Unknown]
  - Therapy non-responder [Unknown]
  - Gait inability [Unknown]
  - Tremor [Unknown]
  - Gingival recession [Unknown]
  - Tooth disorder [Unknown]
  - Contusion [Unknown]
  - Wound infection [Unknown]
  - Vision blurred [Unknown]
  - Wound [Unknown]
  - Decubitus ulcer [Unknown]
  - Dyspnoea [Unknown]
  - Feeding disorder [Unknown]
  - Wound haemorrhage [Unknown]
  - Hyporesponsive to stimuli [Unknown]
